FAERS Safety Report 18648087 (Version 1)
Quarter: 2020Q4

REPORT INFORMATION
  Report Type: Spontaneous
  Country: US (occurrence: US)
  Receive Date: 20201222
  Receipt Date: 20201222
  Transmission Date: 20210114
  Serious: Yes (Other)
  Sender: FDA-Public Use
  Company Number: US-VELOXIS PHARMACEUTICALS-2020VELUS-001044

PATIENT
  Age: 59 Year
  Sex: Male

DRUGS (13)
  1. MYCOPHENOLATE MOFETIL. [Concomitant]
     Active Substance: MYCOPHENOLATE MOFETIL
     Indication: IMMUNOSUPPRESSANT DRUG THERAPY
     Dosage: 1500 MILLIGRAM, Q12H
     Route: 065
     Dates: start: 201604, end: 2018
  2. MYCOPHENOLATE MOFETIL. [Concomitant]
     Active Substance: MYCOPHENOLATE MOFETIL
     Dosage: 1500 MILLIGRAM, Q12H
     Route: 065
     Dates: start: 201510, end: 201511
  3. ENVARSUS XR [Suspect]
     Active Substance: TACROLIMUS
     Indication: IMMUNOSUPPRESSANT DRUG THERAPY
     Dosage: 12- HOUR GOAL TROUGH CONCENTRATION OF 5-8NG/ML
     Route: 065
     Dates: start: 201510, end: 201511
  4. PREDNISONE. [Concomitant]
     Active Substance: PREDNISONE
     Indication: IMMUNOSUPPRESSANT DRUG THERAPY
     Dosage: DOSE WAS INCREASED
     Route: 065
     Dates: start: 2018
  5. ENVARSUS XR [Suspect]
     Active Substance: TACROLIMUS
     Dosage: 12-HOUR GOAL TROUGH CONCENTRATION OF 8 NG/ML
     Route: 065
     Dates: start: 201807
  6. EVEROLIMUS. [Concomitant]
     Active Substance: EVEROLIMUS
     Dosage: 12-HOUR GOAL TROUGH CONCENTRATION OF 5-8 NG/ML
     Dates: start: 201511, end: 201604
  7. ENVARSUS XR [Suspect]
     Active Substance: TACROLIMUS
     Dosage: GOAL 12-HOUR TROUGH CONCENTRATION OF 6-8 NG/ML
     Route: 065
     Dates: start: 2018
  8. PREDNISONE. [Concomitant]
     Active Substance: PREDNISONE
     Dosage: 20 MILLIGRAM, QD
     Route: 065
     Dates: start: 201510
  9. EVEROLIMUS. [Concomitant]
     Active Substance: EVEROLIMUS
     Dosage: GOAL 12-HOUR TROUGH CONCENTRATION OF 5-7 NG/ML
     Dates: start: 2018
  10. ENVARSUS XR [Suspect]
     Active Substance: TACROLIMUS
     Dosage: INCREASED TACROLIMUS GOAL OF 8-10NG/ML
     Route: 065
     Dates: start: 201604
  11. EVEROLIMUS. [Concomitant]
     Active Substance: EVEROLIMUS
     Indication: IMMUNOSUPPRESSANT DRUG THERAPY
     Dosage: 12-HOUR GOAL TROUGH CONCENTRATION OF 8 NG/ML
     Dates: start: 201807
  12. PREDNISONE. [Concomitant]
     Active Substance: PREDNISONE
     Dosage: 15 MILLIGRAM REQUIRED CONTINUED STEROIDS (PREDNISONE 15-20MG)
     Route: 065
     Dates: start: 2016
  13. ENVARSUS XR [Suspect]
     Active Substance: TACROLIMUS
     Dosage: TROUGH GOAL TO 3-5 NG/ML
     Route: 065
     Dates: start: 201511, end: 201604

REACTIONS (2)
  - Chronic kidney disease [Not Recovered/Not Resolved]
  - Prophylaxis against transplant rejection [Unknown]

NARRATIVE: CASE EVENT DATE: 2019
